FAERS Safety Report 21849480 (Version 2)
Quarter: 2023Q1

REPORT INFORMATION
  Report Type: Report from Study
  Country: US (occurrence: None)
  Receive Date: 20230111
  Receipt Date: 20230118
  Transmission Date: 20230417
  Serious: Yes (Hospitalization, Other)
  Sender: FDA-Public Use
  Company Number: 2022A402577

PATIENT
  Age: 24090 Day
  Sex: Female

DRUGS (2)
  1. LYNPARZA [Suspect]
     Active Substance: OLAPARIB
     Indication: Ovarian cancer
     Route: 048
     Dates: start: 20221116, end: 20221219
  2. LYNPARZA [Suspect]
     Active Substance: OLAPARIB
     Indication: Ovarian cancer
     Route: 048
     Dates: start: 20221230

REACTIONS (13)
  - Pneumonia [Unknown]
  - Carbohydrate antigen 125 increased [Unknown]
  - Ascites [Unknown]
  - Upper respiratory tract infection [Unknown]
  - Sinusitis [Unknown]
  - Epistaxis [Not Recovered/Not Resolved]
  - White blood cell count decreased [Unknown]
  - Dyspnoea [Unknown]
  - Fatigue [Unknown]
  - Movement disorder [Unknown]
  - Somnolence [Unknown]
  - Night sweats [Unknown]
  - Off label use [Unknown]

NARRATIVE: CASE EVENT DATE: 20221204
